FAERS Safety Report 8958616 (Version 1)
Quarter: 2012Q4

REPORT INFORMATION
  Report Type: Spontaneous
  Country: US (occurrence: None)
  Receive Date: 20121206
  Receipt Date: 20121206
  Transmission Date: 20130627
  Serious: Yes (Hospitalization)
  Sender: FDA-Public Use
  Company Number: None

PATIENT
  Age: 21 Year
  Sex: Female
  Weight: 86.6 kg

DRUGS (3)
  1. PRIVIGEN [Suspect]
     Indication: IDIOPATHIC THROMBOCYTOPENIC PURPURA
     Dosage: 85gm q24hrs IV
     Route: 042
     Dates: start: 20121130, end: 20121202
  2. APAP [Concomitant]
  3. BENADRYL [Concomitant]

REACTIONS (8)
  - Chest pain [None]
  - Pruritus [None]
  - Dyspnoea [None]
  - Nausea [None]
  - Infusion related reaction [None]
  - Incorrect drug administration rate [None]
  - Haemolysis [None]
  - Renal failure acute [None]
